FAERS Safety Report 6142938-3 (Version None)
Quarter: 2009Q2

REPORT INFORMATION
  Report Type: 
  Country: None (occurrence: None)
  Receive Date: 20090403
  Receipt Date: 20090330
  Transmission Date: 20091009
  Serious: Yes (Hospitalization)
  Sender: FDA-Public Use
  Company Number: DE-BAYER-200916818GPV

PATIENT
  Age: 69 Year
  Sex: Female
  Weight: 80 kg

DRUGS (1)
  1. PRIMOVIST [Suspect]
     Indication: DIAGNOSTIC PROCEDURE
     Dosage: 1 PREFILLED SYRINGE
     Route: 065
     Dates: start: 20090319, end: 20090319

REACTIONS (6)
  - CARDIOVASCULAR DISORDER [None]
  - CHILLS [None]
  - DIZZINESS [None]
  - HYPERHIDROSIS [None]
  - NAUSEA [None]
  - VOMITING [None]
